FAERS Safety Report 22609712 (Version 1)
Quarter: 2023Q2

REPORT INFORMATION
  Report Type: Other
  Country: US (occurrence: None)
  Receive Date: 20230616
  Receipt Date: 20230616
  Transmission Date: 20230721
  Serious: Yes (Death, Hospitalization)
  Sender: FDA-Public Use
  Company Number: US-ROCHE-3368713

PATIENT
  Age: 85 Year
  Sex: Male

DRUGS (1)
  1. RITUXAN [Suspect]
     Active Substance: RITUXIMAB
     Indication: Pemphigoid
     Dosage: 1000 MG DAY 1 AND DAY 15 AND ONCE EVERY 4 WEEK
     Route: 042
     Dates: start: 202207, end: 202207

REACTIONS (4)
  - Cyanosis [Recovered/Resolved]
  - Renal failure [Fatal]
  - Dysphagia [Recovered/Resolved]
  - Off label use [Unknown]

NARRATIVE: CASE EVENT DATE: 20220701
